FAERS Safety Report 4648722-1 (Version None)
Quarter: 2005Q2

REPORT INFORMATION
  Report Type: 
  Country: None (occurrence: None)
  Receive Date: 20050427
  Receipt Date: 20050412
  Transmission Date: 20051028
  Serious: Yes (Hospitalization)
  Sender: FDA-Public Use
  Company Number: MK200504-0134-1

PATIENT
  Age: 32 Year
  Sex: Male

DRUGS (3)
  1. OPTIRAY 320 [Suspect]
     Indication: ANGIOGRAM CEREBRAL
     Dosage: 100 ML, ONE TIME, IA
     Route: 014
     Dates: start: 20050412, end: 20050412
  2. HEPARIN [Concomitant]
  3. LIDOCAINE [Concomitant]

REACTIONS (7)
  - APHASIA [None]
  - CONVULSION [None]
  - HAEMANGIOMA [None]
  - HEMIPARESIS [None]
  - PROCEDURAL COMPLICATION [None]
  - RESPIRATORY ARREST [None]
  - RESTLESSNESS [None]
